FAERS Safety Report 24046866 (Version 1)
Quarter: 2024Q3

REPORT INFORMATION
  Report Type: Spontaneous
  Country: BR (occurrence: None)
  Receive Date: 20240703
  Receipt Date: 20240703
  Transmission Date: 20241017
  Serious: Yes (Other)
  Sender: ASTRAZENECA
  Company Number: 2024A150115

PATIENT
  Age: 68 Year
  Sex: Male

DRUGS (1)
  1. IMFINZI [Suspect]
     Active Substance: DURVALUMAB
     Dosage: EVERY 28 DAYS

REACTIONS (2)
  - Toxicity to various agents [Unknown]
  - Hypothyroidism [Unknown]
